FAERS Safety Report 13734040 (Version 1)
Quarter: 2017Q3

REPORT INFORMATION
  Report Type: Spontaneous
  Country: CN (occurrence: CN)
  Receive Date: 20170708
  Receipt Date: 20170708
  Transmission Date: 20171127
  Serious: Yes (Other)
  Sender: FDA-Public Use
  Company Number: CN-009507513-1706CHN010987

PATIENT
  Age: 32 Year
  Sex: Female

DRUGS (2)
  1. MARVELON [Suspect]
     Active Substance: DESOGESTREL\ETHINYL ESTRADIOL
     Indication: MENORRHAGIA
     Route: 048
  2. MARVELON [Suspect]
     Active Substance: DESOGESTREL\ETHINYL ESTRADIOL
     Indication: CARBOHYDRATE ANTIGEN 125 INCREASED

REACTIONS (2)
  - Endometriosis [Unknown]
  - Product use in unapproved indication [Unknown]
